FAERS Safety Report 6927519-3 (Version None)
Quarter: 2010Q3

REPORT INFORMATION
  Report Type: 
  Country: None (occurrence: None)
  Receive Date: 20100812
  Receipt Date: 20100802
  Transmission Date: 20110219
  Serious: Yes (Other)
  Sender: FDA-Public Use
  Company Number: DSU-2010-03855

PATIENT
  Age: 76 Year
  Sex: Female
  Weight: 81.6475 kg

DRUGS (3)
  1. BENICAR [Suspect]
     Indication: HYPERTENSION
     Dosage: 40 MG (40 MG, QD), PER ORAL
     Route: 048
     Dates: start: 20100730, end: 20100730
  2. PRAVASTATIN (PRAVASTATIN) (20 MILLIGRAM) (PRAVASTATIN) [Concomitant]
  3. METOPROLOL (METOPROLOL) (25 MILLIGRAM) (METOPROLOL) [Concomitant]

REACTIONS (7)
  - DEPRESSION [None]
  - DYSPHONIA [None]
  - EYE SWELLING [None]
  - FEELING ABNORMAL [None]
  - MUSCLE SWELLING [None]
  - OEDEMA PERIPHERAL [None]
  - SUICIDAL IDEATION [None]
